FAERS Safety Report 12534553 (Version 2)
Quarter: 2016Q3

REPORT INFORMATION
  Report Type: Spontaneous
  Country: MA (occurrence: MA)
  Receive Date: 20160706
  Receipt Date: 20160726
  Transmission Date: 20161109
  Serious: Yes (Other)
  Sender: FDA-Public Use
  Company Number: MA-ALLERGAN-1640658

PATIENT
  Age: 57 Year
  Sex: Female

DRUGS (2)
  1. MESALAZINE UNK [Suspect]
     Active Substance: MESALAMINE
     Indication: COLITIS ULCERATIVE
     Dosage: 3000 MG, QD
     Route: 048
  2. PREDNISONE. [Concomitant]
     Active Substance: PREDNISONE
     Indication: COLITIS ULCERATIVE
     Dosage: 1 MG/KG, QD

REACTIONS (7)
  - Interstitial lung disease [Recovered/Resolved]
  - Dyspnoea exertional [Recovered/Resolved]
  - Eosinophilia [Unknown]
  - Cough [Recovered/Resolved]
  - Spirometry abnormal [Recovered/Resolved]
  - Rales [Recovered/Resolved]
  - Chest X-ray abnormal [Recovered/Resolved]
